FAERS Safety Report 20131312 (Version 1)
Quarter: 2021Q4

REPORT INFORMATION
  Report Type: Spontaneous
  Country: US (occurrence: None)
  Receive Date: 20211130
  Receipt Date: 20211130
  Transmission Date: 20220303
  Serious: No
  Sender: FDA-Public Use
  Company Number: None

PATIENT
  Age: 67 Year
  Sex: Female
  Weight: 57.6 kg

DRUGS (4)
  1. PROLIA [Suspect]
     Active Substance: DENOSUMAB
     Indication: Osteoporosis
     Route: 058
     Dates: start: 20201208
  2. VIVELLE [Concomitant]
     Active Substance: ESTRADIOL
  3. PROGESTERONE [Concomitant]
     Active Substance: PROGESTERONE
  4. VITAMINS [Concomitant]
     Active Substance: VITAMINS

REACTIONS (1)
  - Skin reaction [None]

NARRATIVE: CASE EVENT DATE: 20210317
